FAERS Safety Report 16753953 (Version 1)
Quarter: 2019Q3

REPORT INFORMATION
  Report Type: Spontaneous
  Country: US (occurrence: US)
  Receive Date: 20190829
  Receipt Date: 20190829
  Transmission Date: 20191005
  Serious: No
  Sender: FDA-Public Use
  Company Number: US-INDIVIOR US-INDV-119443-2019

PATIENT
  Age: 75 Year
  Sex: Male

DRUGS (1)
  1. PERSERIS [Suspect]
     Active Substance: RISPERIDONE
     Indication: SCHIZOPHRENIA
     Dosage: 120 MILLIGRAM, QMO
     Route: 058
     Dates: start: 20190503

REACTIONS (2)
  - Product administered at inappropriate site [Recovered/Resolved]
  - No adverse event [Unknown]

NARRATIVE: CASE EVENT DATE: 20190503
